FAERS Safety Report 5574081-6 (Version None)
Quarter: 2007Q4

REPORT INFORMATION
  Report Type: 
  Country: None (occurrence: None)
  Receive Date: 20071221
  Receipt Date: 20071206
  Transmission Date: 20080405
  Serious: Yes (Hospitalization)
  Sender: FDA-Public Use
  Company Number: DSA_31020_2007

PATIENT
  Age: 62 Year
  Sex: Male

DRUGS (3)
  1. WYPAX (WYPAX - LORAZEPAM) 0.5 MG [Suspect]
     Indication: DRUG USE FOR UNKNOWN INDICATION
     Dosage: (05 MG QD ORAL)
     Route: 048
  2. TELESMIN (TELESMIN - CARBAMAZEPINE) [Suspect]
     Indication: DRUG USE FOR UNKNOWN INDICATION
     Dosage: (200 MG QD ORAL)
     Route: 048
  3. BUFFERIN [Suspect]
     Indication: DRUG USE FOR UNKNOWN INDICATION
     Dosage: (81 MG QD ORAL)
     Route: 048

REACTIONS (1)
  - STEVENS-JOHNSON SYNDROME [None]
